FAERS Safety Report 20733927 (Version 2)
Quarter: 2022Q2

REPORT INFORMATION
  Report Type: Spontaneous
  Country: JP (occurrence: JP)
  Receive Date: 20220421
  Receipt Date: 20220512
  Transmission Date: 20220721
  Serious: Yes (Death, Other)
  Sender: FDA-Public Use
  Company Number: JP-SAKK-2022SA137119AA

PATIENT
  Age: 44 Year
  Sex: Male
  Weight: 80.2 kg

DRUGS (4)
  1. CLOPIDOGREL BISULFATE [Suspect]
     Active Substance: CLOPIDOGREL BISULFATE
     Indication: Transient ischaemic attack
     Dosage: 75 MG
     Route: 048
  2. CLOPIDOGREL BISULFATE [Suspect]
     Active Substance: CLOPIDOGREL BISULFATE
     Dosage: 75 MG  RESTARTED 24 HOURS AFTER RTPA
     Route: 048
  3. ASPIRIN [Suspect]
     Active Substance: ASPIRIN
     Indication: Transient ischaemic attack
     Dosage: 300 MG (LOADING DOSE)
     Route: 065
  4. ASPIRIN [Suspect]
     Active Substance: ASPIRIN
     Dosage: 100 MG (RESTARTED AFTER 24 HOURS AFTER RTPA)
     Route: 065

REACTIONS (12)
  - Postresuscitation encephalopathy [Fatal]
  - Vertebral artery dissection [Fatal]
  - Subarachnoid haemorrhage [Fatal]
  - Muscular weakness [Fatal]
  - Head discomfort [Fatal]
  - Vomiting [Fatal]
  - Altered state of consciousness [Fatal]
  - Asphyxia [Fatal]
  - Cardio-respiratory arrest [Fatal]
  - Hypoxic-ischaemic encephalopathy [Fatal]
  - Brain stem syndrome [Fatal]
  - Respiratory arrest [Fatal]
